FAERS Safety Report 9797395 (Version 3)
Quarter: 2014Q1

REPORT INFORMATION
  Report Type: Spontaneous
  Country: JP (occurrence: None)
  Receive Date: 20131230
  Receipt Date: 20140203
  Transmission Date: 20141002
  Serious: Yes (Other)
  Sender: FDA-Public Use
  Company Number: JP-20130112

PATIENT
  Age: 37 Year
  Sex: Female

DRUGS (1)
  1. LIPIODOL ULTRA FLUIDE [Suspect]
     Indication: HYSTEROSALPINGOGRAM
     Dates: start: 20110721, end: 20110721

REACTIONS (4)
  - Hypothyroidism [None]
  - Abortion missed [None]
  - Maternal exposure during pregnancy [None]
  - Pregnancy [None]
